FAERS Safety Report 7063688-5 (Version None)
Quarter: 2010Q4

REPORT INFORMATION
  Report Type: 
  Country: None (occurrence: None)
  Receive Date: 20101026
  Receipt Date: 20101020
  Transmission Date: 20110411
  Serious: Yes (Hospitalization)
  Sender: FDA-Public Use
  Company Number: DE-US-EMD SERONO, INC.-7021220

PATIENT
  Sex: Male

DRUGS (1)
  1. REBIF [Suspect]
     Indication: MULTIPLE SCLEROSIS

REACTIONS (5)
  - BLADDER DISORDER [None]
  - MONOPARESIS [None]
  - MULTIPLE SCLEROSIS RELAPSE [None]
  - SENSORY DISTURBANCE [None]
  - VERTIGO POSITIONAL [None]
